FAERS Safety Report 9337329 (Version 1)
Quarter: 2013Q2

REPORT INFORMATION
  Report Type: Spontaneous
  Country: US (occurrence: US)
  Receive Date: 20130607
  Receipt Date: 20130607
  Transmission Date: 20140414
  Serious: Yes (Other)
  Sender: FDA-Public Use
  Company Number: US-UCBSA-088159

PATIENT
  Sex: 0

DRUGS (5)
  1. CIMZIA [Suspect]
     Dosage: UNKNOWN DOSE
  2. HUMIRA [Concomitant]
     Dosage: UNKNOWN
  3. 6-MP [Concomitant]
     Dosage: UNKNOWN
     Dates: start: 2010
  4. ENTOCORT [Concomitant]
     Dosage: UNKNOWN
     Dates: start: 201204
  5. REMICADE [Concomitant]
     Dosage: UNKNOWN
     Dates: start: 20121105

REACTIONS (3)
  - Small intestinal resection [Unknown]
  - Lichen planus [Unknown]
  - Magnesium deficiency [Unknown]
